FAERS Safety Report 7376490-1 (Version None)
Quarter: 2011Q1

REPORT INFORMATION
  Report Type: 
  Country: None (occurrence: None)
  Receive Date: 20110325
  Receipt Date: 20110322
  Transmission Date: 20110831
  Serious: Yes (Death, Hospitalization)
  Sender: FDA-Public Use
  Company Number: PHHO2010US16329

PATIENT
  Sex: Male
  Weight: 100 kg

DRUGS (6)
  1. AFINITOR [Suspect]
     Indication: NEOPLASM
     Dosage: 30 MG D1, 8, 15
     Route: 048
     Dates: start: 20100719, end: 20101012
  2. CARBOPLATIN [Suspect]
     Indication: NEOPLASM
     Dosage: UNK
     Dates: start: 20100719, end: 20101012
  3. PACLITAXEL [Suspect]
     Indication: NEOPLASM
     Dosage: 200 MG/ M2
     Dates: start: 20100719, end: 20101012
  4. CARBOPLATIN [Suspect]
     Dosage: 750 MG
     Dates: start: 20101221, end: 20101221
  5. PACLITAXEL [Suspect]
     Dosage: 290 MG
     Dates: start: 20101221, end: 20101221
  6. AFINITOR [Suspect]
     Dosage: 10 MG D1, 8, 15
     Route: 048
     Dates: start: 20101221, end: 20101221

REACTIONS (18)
  - NEUROPATHY PERIPHERAL [None]
  - SEPSIS [None]
  - PNEUMONIA [None]
  - HYPOXIA [None]
  - PLATELET COUNT DECREASED [None]
  - NEUTROPHIL COUNT DECREASED [None]
  - DYSPNOEA [None]
  - DEEP VEIN THROMBOSIS [None]
  - PULMONARY EMBOLISM [None]
  - WHITE BLOOD CELL COUNT DECREASED [None]
  - HYPOTENSION [None]
  - HYPONATRAEMIA [None]
  - LUNG INFECTION [None]
  - METASTASES TO CENTRAL NERVOUS SYSTEM [None]
  - RESPIRATORY FAILURE [None]
  - PNEUMONITIS [None]
  - ANAEMIA [None]
  - CARDIAC FAILURE [None]
